FAERS Safety Report 15556517 (Version 2)
Quarter: 2018Q4

REPORT INFORMATION
  Report Type: Spontaneous
  Country: RU (occurrence: RU)
  Receive Date: 20181026
  Receipt Date: 20181105
  Transmission Date: 20190205
  Serious: Yes (Hospitalization, Other)
  Sender: FDA-Public Use
  Company Number: RU-PFIZER INC-2018440515

PATIENT
  Age: 53 Year
  Sex: Male
  Weight: 101 kg

DRUGS (4)
  1. CORDARONE [Suspect]
     Active Substance: AMIODARONE HYDROCHLORIDE
     Indication: CORONARY ARTERY DISEASE
     Dosage: 300 MG, 1X/DAY
     Route: 042
     Dates: start: 20180924, end: 20180928
  2. AMIODARONE HCL [Suspect]
     Active Substance: AMIODARONE HYDROCHLORIDE
     Indication: ATRIAL FIBRILLATION
  3. CORDARONE [Suspect]
     Active Substance: AMIODARONE HYDROCHLORIDE
     Indication: ATRIAL FIBRILLATION
  4. AMIODARONE HCL [Suspect]
     Active Substance: AMIODARONE HYDROCHLORIDE
     Indication: CORONARY ARTERY DISEASE
     Dosage: 600 MG, 1X/DAY
     Route: 048
     Dates: start: 20180924, end: 20180928

REACTIONS (2)
  - Hepatitis toxic [Unknown]
  - Nephritis [Unknown]

NARRATIVE: CASE EVENT DATE: 20180928
